FAERS Safety Report 25564686 (Version 1)
Quarter: 2025Q3

REPORT INFORMATION
  Report Type: Spontaneous
  Country: US (occurrence: None)
  Receive Date: 20250715
  Receipt Date: 20250715
  Transmission Date: 20251021
  Serious: Yes (Hospitalization)
  Sender: FDA-CTU
  Company Number: None

PATIENT
  Age: 35 Year
  Sex: Female

DRUGS (11)
  1. GANIRELIX [Suspect]
     Active Substance: GANIRELIX
     Indication: Product used for unknown indication
     Dosage: FREQUENCY : DAILY;?
     Route: 058
     Dates: start: 20250311
  2. ENDOMETRIN [Concomitant]
     Active Substance: PROGESTERONE
  3. ENSKYCE TAB [Concomitant]
  4. ESTRADIOL [Concomitant]
     Active Substance: ESTRADIOL
  5. FOLLISTIM AQ [Concomitant]
     Active Substance: FOLLITROPIN
  6. HAILEY 24 TAB FE [Concomitant]
  7. LEUPROLIDE ACETATE [Concomitant]
     Active Substance: LEUPROLIDE ACETATE
  8. MENOPUR [Concomitant]
     Active Substance: FOLLITROPIN\LUTEINIZING HORMONE
  9. PREGNYL [Concomitant]
     Active Substance: CHORIOGONADOTROPIN ALFA
  10. PREGNYL W/DILUENT BENZYL [Concomitant]
  11. PRENATAL TAB [Concomitant]

REACTIONS (4)
  - Incorrect route of product administration [None]
  - Wrong technique in product usage process [None]
  - Injection site pain [None]
  - Injection site abscess [None]

NARRATIVE: CASE EVENT DATE: 20250711
